FAERS Safety Report 10080556 (Version 3)
Quarter: 2014Q3

REPORT INFORMATION
  Report Type: Report from Study
  Country: GB (occurrence: GB)
  Receive Date: 20140416
  Receipt Date: 20140908
  Transmission Date: 20150326
  Serious: Yes (Hospitalization)
  Sender: FDA-Public Use
  Company Number: GB-AMGEN-GBRCT2013083359

PATIENT
  Age: 69 Year
  Sex: Female
  Weight: 92.7 kg

DRUGS (2)
  1. ETANERCEPT [Suspect]
     Active Substance: ETANERCEPT
     Dosage: UNK, 2 IN 1 D
     Route: 065
     Dates: start: 20130927
  2. ETANERCEPT [Suspect]
     Active Substance: ETANERCEPT
     Indication: PSORIASIS
     Dosage: UNK, 1 IN 1 WK
     Route: 058
     Dates: start: 20130814, end: 20130918

REACTIONS (2)
  - Haemoptysis [Recovered/Resolved]
  - Pneumonia [Recovered/Resolved]

NARRATIVE: CASE EVENT DATE: 20131002
